FAERS Safety Report 11383431 (Version 2)
Quarter: 2015Q3

REPORT INFORMATION
  Report Type: Spontaneous
  Country: GB (occurrence: GB)
  Receive Date: 20150814
  Receipt Date: 20150817
  Transmission Date: 20151125
  Serious: Yes (Hospitalization)
  Sender: FDA-Public Use
  Company Number: GB-ASTRAZENECA-2015SE77981

PATIENT
  Age: 58 Year
  Sex: Female
  Weight: 90 kg

DRUGS (7)
  1. LETROZOLE. [Concomitant]
     Active Substance: LETROZOLE
  2. RAMIPRIL. [Concomitant]
     Active Substance: RAMIPRIL
  3. OMEPRAZOLE. [Suspect]
     Active Substance: OMEPRAZOLE
     Indication: DYSPEPSIA
     Route: 048
     Dates: start: 20150517, end: 20150610
  4. THYROXINE [Concomitant]
     Active Substance: LEVOTHYROXINE
  5. BUTRANS [Concomitant]
     Active Substance: BUPRENORPHINE
  6. PARACETAMOL [Concomitant]
     Active Substance: ACETAMINOPHEN
  7. LERCANIDIPINE [Concomitant]
     Active Substance: LERCANIDIPINE

REACTIONS (1)
  - Liver function test abnormal [Recovered/Resolved]

NARRATIVE: CASE EVENT DATE: 20150527
